FAERS Safety Report 10191622 (Version 5)
Quarter: 2016Q2

REPORT INFORMATION
  Report Type: Spontaneous
  Country: US (occurrence: US)
  Receive Date: 20140523
  Receipt Date: 20160405
  Transmission Date: 20160815
  Serious: Yes (Disabling)
  Sender: FDA-Public Use
  Company Number: US-009507513-1405USA009198

PATIENT
  Sex: Male

DRUGS (2)
  1. PROPECIA [Suspect]
     Active Substance: FINASTERIDE
     Indication: ANDROGENETIC ALOPECIA
     Dosage: 1 MG, QD
     Route: 048
     Dates: start: 19980224
  2. FINASTERIDE. [Suspect]
     Active Substance: FINASTERIDE
     Indication: ALOPECIA
     Dosage: 1 MG, UNK
     Dates: start: 19980224

REACTIONS (16)
  - Benign prostatic hyperplasia [Unknown]
  - Migraine [Unknown]
  - Gastrooesophageal reflux disease [Unknown]
  - Sexual dysfunction [Not Recovered/Not Resolved]
  - Hypertension [Unknown]
  - Intervertebral disc protrusion [Not Recovered/Not Resolved]
  - Libido decreased [Unknown]
  - Drug ineffective [Unknown]
  - Osteoarthritis [Unknown]
  - Spermatocele [Unknown]
  - Drug ineffective [Unknown]
  - Sensory loss [Unknown]
  - Hernia [Unknown]
  - Hernia repair [Unknown]
  - Erectile dysfunction [Not Recovered/Not Resolved]
  - Depression [Unknown]

NARRATIVE: CASE EVENT DATE: 199803
